FAERS Safety Report 14392002 (Version 1)
Quarter: 2018Q1

REPORT INFORMATION
  Report Type: Spontaneous
  Country: DK (occurrence: DK)
  Receive Date: 20180116
  Receipt Date: 20180116
  Transmission Date: 20180509
  Serious: Yes (Other)
  Sender: FDA-Public Use
  Company Number: DK-ENDO PHARMACEUTICALS INC-2018-014204

PATIENT
  Sex: Male

DRUGS (1)
  1. TESTIM [Suspect]
     Active Substance: TESTOSTERONE
     Indication: PRODUCT USED FOR UNKNOWN INDICATION
     Dosage: UNK UNKNOWN, UNKNOWN
     Route: 065

REACTIONS (6)
  - Blood aldosterone increased [Unknown]
  - Drug abuse [Unknown]
  - Blood pressure systolic increased [Unknown]
  - Norepinephrine increased [Unknown]
  - Atrial natriuretic peptide decreased [Unknown]
  - Aortic disorder [Unknown]
